FAERS Safety Report 16398790 (Version 1)
Quarter: 2019Q2

REPORT INFORMATION
  Report Type: Spontaneous
  Country: IT (occurrence: IT)
  Receive Date: 20190606
  Receipt Date: 20190606
  Transmission Date: 20190711
  Serious: Yes (Hospitalization, Other)
  Sender: FDA-Public Use
  Company Number: IT-BRISTOL-MYERS SQUIBB COMPANY-BMS-2019-051062

PATIENT
  Age: 80 Year
  Sex: Female

DRUGS (1)
  1. COUMADIN [Suspect]
     Active Substance: WARFARIN SODIUM
     Indication: HEART VALVE OPERATION
     Dosage: 3/4 OR HALF A TABLET EVERYDAY
     Route: 048

REACTIONS (4)
  - Myocardial infarction [Unknown]
  - Haematochezia [Unknown]
  - Haematoma [Unknown]
  - Haematemesis [Unknown]

NARRATIVE: CASE EVENT DATE: 201904
